FAERS Safety Report 4263849-4 (Version None)
Quarter: 2004Q1

REPORT INFORMATION
  Report Type: 
  Country: None (occurrence: None)
  Receive Date: 20040106
  Receipt Date: 20030924
  Transmission Date: 20041129
  Serious: Yes (Other)
  Sender: FDA-Public Use
  Company Number: PHRM2003FR02529

PATIENT
  Age: 63 Year
  Sex: Male
  Weight: 69 kg

DRUGS (4)
  1. SOPROL [Concomitant]
     Indication: HYPERTENSION
     Dosage: 10 MG, UNK
     Route: 048
  2. VASTEN [Concomitant]
     Indication: HYPERCHOLESTEROLAEMIA
     Dosage: 20 MG, UNK
     Route: 048
  3. VASOBRAL [Concomitant]
     Indication: ERECTILE DYSFUNCTION
     Dosage: UNK, UNK
     Route: 048
     Dates: start: 20010106, end: 20031016
  4. LAMISIL [Suspect]
     Indication: NAIL TINEA
     Dosage: 250 MG, QD
     Route: 048
     Dates: start: 20020520, end: 20030820

REACTIONS (4)
  - HYPERSENSITIVITY [None]
  - PANCREATITIS CHRONIC [None]
  - RETROPERITONEAL FIBROSIS [None]
  - WEIGHT DECREASED [None]
